FAERS Safety Report 5190760-7 (Version None)
Quarter: 2006Q4

REPORT INFORMATION
  Report Type: 
  Country: None (occurrence: None)
  Receive Date: 20061222
  Receipt Date: 20061218
  Transmission Date: 20070319
  Serious: Yes (Hospitalization)
  Sender: FDA-Public Use
  Company Number: US-BRISTOL-MYERS SQUIBB COMPANY-13616735

PATIENT
  Age: 62 Year
  Sex: Female
  Weight: 70 kg

DRUGS (8)
  1. PACLITAXEL [Suspect]
     Indication: BREAST CANCER METASTATIC
     Route: 042
     Dates: start: 20061103, end: 20061103
  2. BEVACIZUMAB [Suspect]
     Indication: BREAST CANCER METASTATIC
     Route: 042
     Dates: start: 20061103, end: 20061103
  3. RAMIPRIL [Concomitant]
     Dates: start: 20060330
  4. VICODIN [Concomitant]
     Dates: start: 20050609
  5. VITAMIN CAP [Concomitant]
  6. OS-CAL [Concomitant]
  7. DURAGESIC-100 [Concomitant]
  8. MACROBID [Concomitant]

REACTIONS (9)
  - ASTHENIA [None]
  - DEHYDRATION [None]
  - ESCHERICHIA BACTERAEMIA [None]
  - FALL [None]
  - HEAD INJURY [None]
  - NEPHROLITHIASIS [None]
  - RENAL FAILURE [None]
  - SYNCOPE [None]
  - URINARY TRACT INFECTION [None]
